FAERS Safety Report 22621546 (Version 1)
Quarter: 2023Q2

REPORT INFORMATION
  Report Type: Spontaneous
  Country: US (occurrence: None)
  Receive Date: 20230619
  Receipt Date: 20230619
  Transmission Date: 20230722
  Serious: No
  Sender: FDA-Public Use
  Company Number: None

PATIENT
  Age: 44 Year
  Sex: Female
  Weight: 63 kg

DRUGS (1)
  1. GLATIRAMER ACETATE [Suspect]
     Active Substance: GLATIRAMER ACETATE
     Indication: Multiple sclerosis
     Dosage: OTHER QUANTITY : 1 INJECTION(S);?OTHER FREQUENCY : 3 TIMES/WEEK;?OTHER ROUTE : SUBCUTANEOUS INJECTIO
     Route: 050

REACTIONS (8)
  - Flushing [None]
  - Flushing [None]
  - Chills [None]
  - Tremor [None]
  - Abdominal pain upper [None]
  - Abdominal pain upper [None]
  - Dizziness [None]
  - Diplopia [None]

NARRATIVE: CASE EVENT DATE: 20230618
